FAERS Safety Report 13836969 (Version 1)
Quarter: 2017Q3

REPORT INFORMATION
  Report Type: Spontaneous
  Country: US (occurrence: US)
  Receive Date: 20170804
  Receipt Date: 20170804
  Transmission Date: 20171127
  Serious: No
  Sender: FDA-Public Use
  Company Number: US-ROCHE-1021829

PATIENT
  Sex: Female
  Weight: 49.49 kg

DRUGS (1)
  1. BONIVA [Suspect]
     Active Substance: IBANDRONATE SODIUM
     Indication: OSTEOPOROSIS
     Route: 042
     Dates: start: 20101027, end: 20111213

REACTIONS (6)
  - Musculoskeletal disorder [Unknown]
  - Bone pain [Unknown]
  - Pharyngeal disorder [Unknown]
  - Paraesthesia [Recovered/Resolved]
  - Hypoaesthesia [Unknown]
  - Oropharyngeal pain [Unknown]
